FAERS Safety Report 15013804 (Version 1)
Quarter: 2018Q2

REPORT INFORMATION
  Report Type: Spontaneous
  Country: US (occurrence: US)
  Receive Date: 20180614
  Receipt Date: 20180614
  Transmission Date: 20180711
  Serious: Yes (Other)
  Sender: FDA-Public Use
  Company Number: US-JAZZ-2018-US-009185

PATIENT
  Age: 47 Year
  Sex: Male
  Weight: 147 kg

DRUGS (3)
  1. PRIALT [Suspect]
     Active Substance: ZICONOTIDE ACETATE
     Indication: COMPLEX REGIONAL PAIN SYNDROME
     Dosage: 3 ?G
     Route: 037
  2. DILAUDID [Suspect]
     Active Substance: HYDROMORPHONE HYDROCHLORIDE
     Indication: COMPLEX REGIONAL PAIN SYNDROME
     Dosage: 10 MG
     Route: 037
  3. CLONIDINE. [Suspect]
     Active Substance: CLONIDINE
     Indication: COMPLEX REGIONAL PAIN SYNDROME
     Dosage: 175 ?G
     Route: 037

REACTIONS (1)
  - Granuloma [Not Recovered/Not Resolved]

NARRATIVE: CASE EVENT DATE: 20180604
